FAERS Safety Report 5355753-5 (Version None)
Quarter: 2007Q2

REPORT INFORMATION
  Report Type: 
  Country: None (occurrence: None)
  Receive Date: 20070530
  Receipt Date: 20061009
  Transmission Date: 20071010
  Serious: Yes (Hospitalization)
  Sender: FDA-Public Use
  Company Number: US200610001736

PATIENT
  Sex: Male
  Weight: 151.9 kg

DRUGS (7)
  1. ZYPREXA [Suspect]
     Dates: start: 19980301, end: 20050101
  2. CLOZARIL [Concomitant]
  3. SEROQUEL [Concomitant]
  4. GEODON [Concomitant]
  5. TRILAFON [Concomitant]
  6. DEPAKOTE [Concomitant]
  7. SYMBYAX [Concomitant]

REACTIONS (3)
  - DIABETES MELLITUS [None]
  - OEDEMA PERIPHERAL [None]
  - SKIN DISORDER [None]
